FAERS Safety Report 8304324-7 (Version None)
Quarter: 2012Q2

REPORT INFORMATION
  Report Type: 
  Country: None (occurrence: None)
  Receive Date: 20120423
  Receipt Date: 20120423
  Transmission Date: 20120825
  Serious: No
  Sender: FDA-Public Use
  Company Number: None

PATIENT
  Age: 36 Year
  Sex: Female
  Weight: 79.378 kg

DRUGS (2)
  1. TERBUTALINE [Suspect]
     Indication: PROPHYLAXIS
     Dosage: UNK
     Route: 048
     Dates: start: 19940505, end: 19940505
  2. TERBUTALINE [Suspect]
     Indication: PREMATURE LABOUR
     Dosage: UNK
     Route: 048
     Dates: start: 19940505, end: 19940505

REACTIONS (2)
  - MATERNAL EXPOSURE DURING PREGNANCY [None]
  - ANXIETY [None]
